FAERS Safety Report 6750304-2 (Version None)
Quarter: 2010Q2

REPORT INFORMATION
  Report Type: 
  Country: None (occurrence: None)
  Receive Date: 20100527
  Receipt Date: 20100520
  Transmission Date: 20101027
  Serious: Yes (Hospitalization)
  Sender: FDA-Public Use
  Company Number: 1000013969

PATIENT
  Age: 55 Year
  Sex: Male

DRUGS (17)
  1. LEXAPRO [Suspect]
     Indication: DEPRESSION
     Dosage: 10 MG (10 MG, 1 IN 1 D), ORAL; 20 MG (200 MG, 1 IN 1 D), ORAL
     Route: 048
     Dates: end: 20100409
  2. LEXAPRO [Suspect]
     Indication: DEPRESSION
     Dosage: 10 MG (10 MG, 1 IN 1 D), ORAL; 20 MG (200 MG, 1 IN 1 D), ORAL
     Route: 048
     Dates: start: 20051001
  3. LEXAPRO [Suspect]
     Indication: DEPRESSION
     Dosage: 10 MG (10 MG, 1 IN 1 D), ORAL; 5 MG (5 MG, 1 IN 1 D), ORAL
     Route: 048
     Dates: start: 20100410, end: 20100501
  4. LEXAPRO [Suspect]
     Indication: DEPRESSION
     Dosage: 10 MG (10 MG, 1 IN 1 D), ORAL; 5 MG (5 MG, 1 IN 1 D), ORAL
     Route: 048
     Dates: start: 20100501
  5. TACROLIMUS [Suspect]
     Indication: IMMUNOSUPPRESSANT DRUG THERAPY
     Dosage: ORAL
     Route: 048
     Dates: start: 20100201
  6. ACYCLOVIR [Concomitant]
  7. FLUDROCORTISONE [Concomitant]
  8. TRIMETHOPRIM [Concomitant]
  9. MAGNESIUM [Concomitant]
  10. LASIX [Concomitant]
  11. METOPROLOL [Concomitant]
  12. OMEPRAZOLE [Concomitant]
  13. NYSTATIN [Concomitant]
  14. MULTI-VITAMINS [Concomitant]
  15. ASPIRIN [Concomitant]
  16. OXYCODONE [Concomitant]
  17. CYCLOBENZAPRINE [Concomitant]

REACTIONS (1)
  - MENTAL STATUS CHANGES [None]
